FAERS Safety Report 7812563-4 (Version None)
Quarter: 2011Q4

REPORT INFORMATION
  Report Type: 
  Country: None (occurrence: None)
  Receive Date: 20111013
  Receipt Date: 20110830
  Transmission Date: 20120403
  Serious: No
  Sender: FDA-Public Use
  Company Number: US-NOVEN-11US003081

PATIENT
  Sex: Male

DRUGS (2)
  1. FENTANYL [Suspect]
     Indication: PAIN
     Dosage: 25 UG, Q72H
     Route: 062
     Dates: start: 20110801
  2. XANAX [Concomitant]
     Indication: INSOMNIA
     Dosage: 1, TWICE DAILY
     Route: 048
     Dates: start: 20110801

REACTIONS (9)
  - MALAISE [None]
  - CONSTIPATION [None]
  - ANXIETY [None]
  - URINARY TRACT INFECTION [None]
  - HANGOVER [None]
  - DRUG ADMINISTRATION ERROR [None]
  - ABDOMINAL PAIN [None]
  - INSOMNIA [None]
  - NAUSEA [None]
